FAERS Safety Report 4286252-X (Version None)
Quarter: 2004Q1

REPORT INFORMATION
  Report Type: 
  Country: None (occurrence: None)
  Receive Date: 20040113
  Receipt Date: 20030922
  Transmission Date: 20041129
  Serious: Yes (Other)
  Sender: FDA-Public Use
  Company Number: PHEH2003US08624

PATIENT
  Age: 62 Year
  Sex: Male

DRUGS (2)
  1. CYCLOSPORINE [Suspect]
     Indication: RENAL TRANSPLANT
  2. CELLCEPT [Concomitant]

REACTIONS (7)
  - AREFLEXIA [None]
  - AZOTAEMIA [None]
  - BURNING SENSATION [None]
  - FLUID RETENTION [None]
  - NEUROPATHY PERIPHERAL [None]
  - PAIN [None]
  - RENAL FAILURE [None]
